FAERS Safety Report 5990044-0 (Version None)
Quarter: 2008Q4

REPORT INFORMATION
  Report Type: 
  Country: None (occurrence: None)
  Receive Date: 20081209
  Receipt Date: 20081201
  Transmission Date: 20090506
  Serious: Yes (Other)
  Sender: FDA-Public Use
  Company Number: DSA_32776_2008

PATIENT
  Sex: Female

DRUGS (2)
  1. ATIVAN [Suspect]
     Indication: AUTONOMIC NERVOUS SYSTEM IMBALANCE
     Dosage: (0.5 MG TID)
     Dates: start: 20070101
  2. LORAZEPAM [Suspect]
     Indication: AUTONOMIC NERVOUS SYSTEM IMBALANCE
     Dosage: (DF)

REACTIONS (15)
  - ABDOMINAL PAIN UPPER [None]
  - BURNING SENSATION [None]
  - CARDIAC ARREST [None]
  - CHEST PAIN [None]
  - CHOKING [None]
  - DYSPHAGIA [None]
  - GASTRIC DISORDER [None]
  - GLOSSODYNIA [None]
  - HYPERHIDROSIS [None]
  - ILL-DEFINED DISORDER [None]
  - ORAL DISORDER [None]
  - PAIN [None]
  - PRODUCT QUALITY ISSUE [None]
  - SPEECH DISORDER [None]
  - TONGUE DISORDER [None]
